FAERS Safety Report 4965825-2 (Version None)
Quarter: 2006Q2

REPORT INFORMATION
  Report Type: 
  Country: None (occurrence: None)
  Receive Date: 20060406
  Receipt Date: 20060406
  Transmission Date: 20061013
  Serious: Yes (Hospitalization, Disabling)
  Sender: FDA-Public Use
  Company Number: None

PATIENT
  Sex: Female
  Weight: 80.2867 kg

DRUGS (1)
  1. MIRENA [Suspect]
     Indication: CONTRACEPTION
     Dates: start: 20060127, end: 20060203

REACTIONS (4)
  - HAEMORRHAGE [None]
  - IUD MIGRATION [None]
  - PROCEDURAL PAIN [None]
  - UTERINE PERFORATION [None]
